FAERS Safety Report 9890890 (Version 1)
Quarter: 2014Q1

REPORT INFORMATION
  Report Type: Spontaneous
  Country: US (occurrence: None)
  Receive Date: 20140210
  Receipt Date: 20140210
  Transmission Date: 20141002
  Serious: Yes (Disabling)
  Sender: FDA-Public Use
  Company Number: None

PATIENT
  Age: 58 Year
  Sex: Male
  Weight: 95.26 kg

DRUGS (2)
  1. ISOVUE 370 [Suspect]
     Indication: SCAN WITH CONTRAST
     Route: 042
     Dates: start: 20140108, end: 20140108
  2. SYNTHROID [Concomitant]

REACTIONS (6)
  - Breath sounds abnormal [None]
  - Chest discomfort [None]
  - Oropharyngeal pain [None]
  - Dysphagia [None]
  - Tinnitus [None]
  - Ear pain [None]
